FAERS Safety Report 6833500-5 (Version None)
Quarter: 2010Q3

REPORT INFORMATION
  Report Type: 
  Country: None (occurrence: None)
  Receive Date: 20100712
  Receipt Date: 20070323
  Transmission Date: 20110219
  Serious: No
  Sender: FDA-Public Use
  Company Number: US-PFIZER INC-2007025517

PATIENT
  Sex: Male
  Weight: 104.33 kg

DRUGS (3)
  1. CHANTIX [Suspect]
     Indication: SMOKING CESSATION THERAPY
     Route: 048
     Dates: start: 20070301
  2. NICOTINE [Concomitant]
     Indication: SMOKING CESSATION THERAPY
  3. WELLBUTRIN [Concomitant]

REACTIONS (1)
  - LIBIDO DECREASED [None]
